FAERS Safety Report 25440289 (Version 1)
Quarter: 2025Q2

REPORT INFORMATION
  Report Type: Spontaneous
  Country: US (occurrence: US)
  Receive Date: 20250616
  Receipt Date: 20250616
  Transmission Date: 20250717
  Serious: No
  Sender: PFIZER
  Company Number: US-PFIZER INC-202500120782

PATIENT
  Sex: Female

DRUGS (1)
  1. ZAVZPRET [Suspect]
     Active Substance: ZAVEGEPANT HYDROCHLORIDE
     Indication: Headache

REACTIONS (1)
  - Drug ineffective [Unknown]

NARRATIVE: CASE EVENT DATE: 20250612
